FAERS Safety Report 13790918 (Version 1)
Quarter: 2017Q3

REPORT INFORMATION
  Report Type: Spontaneous
  Country: US (occurrence: US)
  Receive Date: 20170725
  Receipt Date: 20170725
  Transmission Date: 20171127
  Serious: No
  Sender: FDA-Public Use
  Company Number: US-TARO-2016TAR00757

PATIENT

DRUGS (1)
  1. DESOXIMETASONE OINTMENT USP 0.25% [Suspect]
     Active Substance: DESOXIMETASONE

REACTIONS (2)
  - Product substitution issue [Unknown]
  - Burning sensation [Unknown]
